FAERS Safety Report 4459375-X (Version None)
Quarter: 2004Q3

REPORT INFORMATION
  Report Type: 
  Country: None (occurrence: None)
  Receive Date: 20040927
  Receipt Date: 20040916
  Transmission Date: 20050211
  Serious: Yes (Other)
  Sender: FDA-Public Use
  Company Number: GR-ROCHE-380655

PATIENT
  Age: 38 Year
  Sex: Female
  Weight: 48 kg

DRUGS (4)
  1. PEGASYS [Suspect]
     Dosage: STRENGTH REPORTED AS 135 MCG / 0.5 ML
     Route: 058
     Dates: start: 20040227, end: 20040723
  2. PEGASYS [Suspect]
     Route: 058
  3. REBETOL [Concomitant]
     Route: 048
     Dates: start: 20040227, end: 20040723
  4. INSULIN [Concomitant]
     Indication: DIABETES MELLITUS

REACTIONS (2)
  - DIABETIC KETOACIDOSIS [None]
  - HYPERTHYROIDISM [None]
